FAERS Safety Report 6367868-3 (Version None)
Quarter: 2009Q3

REPORT INFORMATION
  Report Type: 
  Country: None (occurrence: None)
  Receive Date: 20090921
  Receipt Date: 20090918
  Transmission Date: 20100115
  Serious: Yes (Hospitalization, Other)
  Sender: FDA-Public Use
  Company Number: US-RB-019070-09

PATIENT
  Sex: Female

DRUGS (1)
  1. SUBOXONE [Suspect]
     Indication: DRUG USE FOR UNKNOWN INDICATION
     Dosage: DOSING INFORMATION UNKNOWN
     Route: 065

REACTIONS (9)
  - BURSITIS [None]
  - DERMATITIS CONTACT [None]
  - FATIGUE [None]
  - HYPERHIDROSIS [None]
  - HYPERTHYROIDISM [None]
  - INSOMNIA [None]
  - PNEUMONIA [None]
  - PULMONARY CONGESTION [None]
  - WHEEZING [None]
